FAERS Safety Report 5578279-2 (Version None)
Quarter: 2007Q4

REPORT INFORMATION
  Report Type: 
  Country: None (occurrence: None)
  Receive Date: 20071227
  Receipt Date: 20071211
  Transmission Date: 20080405
  Serious: Yes (Other)
  Sender: FDA-Public Use
  Company Number: STI-2007-02023

PATIENT
  Age: 51 Year
  Sex: Female

DRUGS (2)
  1. 007A CLARIPEL (HYDROQUINONE) (HYDROQUINONE) (4 %, GEL) [Suspect]
     Indication: CHEMICAL BURN OF SKIN
     Dosage: SEE IMAGE
  2. SUNSCREEN SPF 30 (SUNSCREEN) [Suspect]
     Dosage: (WHEN GO OUTSIDE OR GO TO SWIMMING POOL)

REACTIONS (6)
  - DEPRESSION [None]
  - OFF LABEL USE [None]
  - PALLOR [None]
  - SKIN EXFOLIATION [None]
  - SKIN HYPOPIGMENTATION [None]
  - SKIN INJURY [None]
